FAERS Safety Report 22525044 (Version 2)
Quarter: 2023Q2

REPORT INFORMATION
  Report Type: Spontaneous
  Country: ES (occurrence: ES)
  Receive Date: 20230606
  Receipt Date: 20230614
  Transmission Date: 20230722
  Serious: Yes (Other)
  Sender: FDA-Public Use
  Company Number: ES-PFIZER INC-PV202300097725

PATIENT
  Age: 32 Year
  Sex: Male

DRUGS (4)
  1. CISPLATIN [Suspect]
     Active Substance: CISPLATIN
     Indication: Histiocytic sarcoma
     Dosage: CYCLIC (2 CYCLES)
  2. CYTARABINE [Suspect]
     Active Substance: CYTARABINE
     Indication: Histiocytic sarcoma
     Dosage: CYCLIC (2 CYCLES)
  3. OXALIPLATIN [Suspect]
     Active Substance: OXALIPLATIN
     Indication: Histiocytic sarcoma
     Dosage: UNK, CYCLIC
  4. DEXAMETHASONE [Suspect]
     Active Substance: DEXAMETHASONE
     Indication: Histiocytic sarcoma
     Dosage: CYCLIC (2 CYCLES)

REACTIONS (1)
  - Deafness [Unknown]
